FAERS Safety Report 8313036-5 (Version None)
Quarter: 2012Q2

REPORT INFORMATION
  Report Type: 
  Country: None (occurrence: None)
  Receive Date: 20120426
  Receipt Date: 20120418
  Transmission Date: 20120825
  Serious: Yes (Hospitalization)
  Sender: FDA-Public Use
  Company Number: US-BAYER-2011-075738

PATIENT
  Age: 20 Year
  Sex: Female

DRUGS (9)
  1. SENNA [Concomitant]
  2. DOCUSATE SODIUM [Concomitant]
  3. DILAUDID [Concomitant]
  4. YAZ [Suspect]
  5. MS CONTIN [Concomitant]
  6. YASMIN [Suspect]
  7. CARISOPRODOL [Concomitant]
     Indication: MUSCLE SPASMS
     Dosage: UNK
     Dates: start: 20060610
  8. NONSTEROIDAL ANTI-INFLAMMATORY AGENTS [Concomitant]
     Dosage: UNK
     Dates: start: 20060612
  9. MORPHINE [Concomitant]

REACTIONS (1)
  - DEEP VEIN THROMBOSIS [None]
